FAERS Safety Report 10503935 (Version 1)
Quarter: 2014Q4

REPORT INFORMATION
  Report Type: Spontaneous
  Country: US (occurrence: None)
  Receive Date: 20141007
  Receipt Date: 20141007
  Transmission Date: 20150528
  Serious: Yes (Other)
  Sender: FDA-Public Use
  Company Number: None

PATIENT
  Age: 68 Year
  Sex: Female
  Weight: 72.58 kg

DRUGS (1)
  1. ASACOL HD [Suspect]
     Active Substance: MESALAMINE
     Indication: CROHN^S DISEASE
     Dosage: MANY YEARS, TWO TABLETS, TWICE/DAY, BY MOUTH
     Route: 048

REACTIONS (1)
  - Product coating issue [None]

NARRATIVE: CASE EVENT DATE: 20140912
